FAERS Safety Report 12046074 (Version 1)
Quarter: 2016Q1

REPORT INFORMATION
  Report Type: Report from Study
  Country: US (occurrence: US)
  Receive Date: 20160208
  Receipt Date: 20160208
  Transmission Date: 20160526
  Serious: No
  Sender: FDA-Public Use
  Company Number: US-ABBVIE-15P-163-1366291-00

PATIENT
  Age: 46 Year
  Sex: Male
  Weight: 123.49 kg

DRUGS (8)
  1. VICODIN [Concomitant]
     Active Substance: ACETAMINOPHEN\HYDROCODONE BITARTRATE
     Indication: ARTHRITIS
  2. HUMIRA [Suspect]
     Active Substance: ADALIMUMAB
     Indication: RHEUMATOID ARTHRITIS
     Route: 058
     Dates: start: 2014
  3. LISINOPRIL. [Concomitant]
     Active Substance: LISINOPRIL
     Indication: HYPERTENSION
  4. METHOTREXATE [Concomitant]
     Active Substance: METHOTREXATE
     Indication: RHEUMATOID ARTHRITIS
  5. VICODIN [Concomitant]
     Active Substance: ACETAMINOPHEN\HYDROCODONE BITARTRATE
     Indication: PRODUCT USED FOR UNKNOWN INDICATION
  6. OXYCONTIN [Concomitant]
     Active Substance: OXYCODONE HYDROCHLORIDE
     Indication: ARTHRITIS
  7. CIALIS [Concomitant]
     Active Substance: TADALAFIL
     Indication: PRODUCT USED FOR UNKNOWN INDICATION
  8. ANDROGEL [Suspect]
     Active Substance: TESTOSTERONE
     Indication: BLOOD TESTOSTERONE DECREASED
     Dosage: 4 PUMPS PER DAY
     Route: 061

REACTIONS (11)
  - Peripheral swelling [Recovering/Resolving]
  - Rheumatoid arthritis [Recovering/Resolving]
  - Pain in extremity [Recovering/Resolving]
  - Underdose [Recovered/Resolved]
  - Musculoskeletal pain [Recovered/Resolved]
  - Arthralgia [Recovering/Resolving]
  - Joint stiffness [Not Recovered/Not Resolved]
  - Weight decreased [Not Recovered/Not Resolved]
  - Joint swelling [Recovering/Resolving]
  - Musculoskeletal stiffness [Not Recovered/Not Resolved]
  - Therapeutic response unexpected [Not Recovered/Not Resolved]

NARRATIVE: CASE EVENT DATE: 2014
